APPROVED DRUG PRODUCT: LIDOCAINE HYDROCHLORIDE 0.2% AND DEXTROSE 5% IN PLASTIC CONTAINER
Active Ingredient: LIDOCAINE HYDROCHLORIDE
Strength: 200MG/100ML
Dosage Form/Route: INJECTABLE;INJECTION
Application: N018461 | Product #002 | TE Code: AP
Applicant: BAXTER HEALTHCARE CORP
Approved: Approved Prior to Jan 1, 1982 | RLD: No | RS: No | Type: RX